FAERS Safety Report 7830348-X (Version None)
Quarter: 2011Q4

REPORT INFORMATION
  Report Type: 
  Country: None (occurrence: None)
  Receive Date: 20111021
  Receipt Date: 20111018
  Transmission Date: 20120403
  Serious: Yes (Disabling)
  Sender: FDA-Public Use
  Company Number: DE-SANOFI-AVENTIS-2011SA057124

PATIENT
  Age: 67 Year
  Sex: Female
  Weight: 72 kg

DRUGS (7)
  1. MULTAQ [Suspect]
     Indication: CARDIOVERSION
     Route: 048
     Dates: start: 20110722, end: 20110822
  2. DIGITOXIN TAB [Concomitant]
     Route: 048
  3. TORSEMIDE [Concomitant]
     Indication: HYPERTENSION
     Route: 048
  4. MARCUPHEN [Concomitant]
     Route: 048
  5. MULTAQ [Suspect]
     Route: 048
     Dates: start: 20110722, end: 20110822
  6. MULTAQ [Suspect]
     Indication: ATRIAL FIBRILLATION
     Route: 048
     Dates: start: 20110722, end: 20110822
  7. BISOPROLOL FUMARATE [Concomitant]
     Route: 048

REACTIONS (5)
  - VOMITING [None]
  - OEDEMA PERIPHERAL [None]
  - NAUSEA [None]
  - DIARRHOEA [None]
  - GASTROINTESTINAL DISORDER [None]
